FAERS Safety Report 17559558 (Version 1)
Quarter: 2020Q1

REPORT INFORMATION
  Report Type: Spontaneous
  Country: US (occurrence: US)
  Receive Date: 20200319
  Receipt Date: 20200319
  Transmission Date: 20200409
  Serious: Yes (Life-Threatening, Hospitalization, Other)
  Sender: FDA-Public Use
  Company Number: US-DRREDDYS-USA/USA/20/0120813

PATIENT
  Age: 64 Year
  Sex: Male

DRUGS (2)
  1. HEPARIN SODIUM. [Suspect]
     Active Substance: HEPARIN SODIUM
     Indication: PRODUCT USED FOR UNKNOWN INDICATION
     Dosage: THE STANDARD PURGE SOLUTION WAS HEPARIN 25000 UNITS IN 500 ML DEXTROSE 5% (50 UNITS/ML)
     Route: 065
  2. DEXTROSE. [Concomitant]
     Active Substance: DEXTROSE
     Indication: PRODUCT USED FOR UNKNOWN INDICATION
     Dosage: THE STANDARD PURGE SOLUTION WAS HEPARIN 25000 UNITS IN 500 ML DEXTROSE 5% (50 UNITS/ML)
     Route: 065

REACTIONS (2)
  - Heparin-induced thrombocytopenia [Unknown]
  - Device related thrombosis [Recovering/Resolving]
